FAERS Safety Report 13643736 (Version 1)
Quarter: 2017Q2

REPORT INFORMATION
  Report Type: Spontaneous
  Country: US (occurrence: US)
  Receive Date: 20170612
  Receipt Date: 20170612
  Transmission Date: 20170830
  Serious: No
  Sender: FDA-Public Use
  Company Number: US-SUNOVION-2017SUN002388

PATIENT
  Sex: Male

DRUGS (11)
  1. PROZAC [Concomitant]
     Active Substance: FLUOXETINE HYDROCHLORIDE
     Indication: DEPRESSION
  2. LOXAPINE. [Concomitant]
     Active Substance: LOXAPINE
     Dosage: 10 MG, UNK
     Route: 048
  3. FANAPT [Concomitant]
     Active Substance: ILOPERIDONE
  4. ZYPREXA [Concomitant]
     Active Substance: OLANZAPINE
  5. LOXAPINE. [Concomitant]
     Active Substance: LOXAPINE
     Indication: BIPOLAR II DISORDER
     Dosage: 5 MG, QD  (AT NIGHT)
     Route: 048
  6. OXTELLAR [Concomitant]
  7. LATUDA [Suspect]
     Active Substance: LURASIDONE HYDROCHLORIDE
     Dosage: UNK
     Route: 048
  8. LOXAPINE. [Concomitant]
     Active Substance: LOXAPINE
     Dosage: 25 UNK, UNK
     Route: 048
  9. SAPHRIS [Concomitant]
     Active Substance: ASENAPINE MALEATE
  10. ABILIFY [Concomitant]
     Active Substance: ARIPIPRAZOLE
  11. LATUDA [Suspect]
     Active Substance: LURASIDONE HYDROCHLORIDE
     Dosage: UNK
     Route: 048

REACTIONS (3)
  - Akathisia [Unknown]
  - Panic reaction [Unknown]
  - Anxiety [Unknown]
